FAERS Safety Report 23560117 (Version 1)
Quarter: 2024Q1

REPORT INFORMATION
  Report Type: Report from Study
  Country: US (occurrence: US)
  Receive Date: 20240223
  Receipt Date: 20240223
  Transmission Date: 20240409
  Serious: Yes (Death, Other)
  Sender: FDA-Public Use
  Company Number: US-002147023-NVSC2024US006687

PATIENT
  Sex: Female

DRUGS (18)
  1. PROMACTA [Suspect]
     Active Substance: ELTROMBOPAG OLAMINE
     Indication: Product used for unknown indication
     Dosage: UNK
     Route: 065
  2. FUROSEMIDE [Concomitant]
     Active Substance: FUROSEMIDE
     Indication: Product used for unknown indication
     Dosage: 1 DOSAGE FORM, QD (EVERY EVENING)
     Route: 048
  3. TRAZODONE [Concomitant]
     Active Substance: TRAZODONE HYDROCHLORIDE
     Indication: Product used for unknown indication
     Dosage: 1 DOSAGE FORM, QD (TABLET)
     Route: 048
  4. ONDANSETRON [Concomitant]
     Active Substance: ONDANSETRON
     Indication: Nausea
     Dosage: 1 DOSAGE FORM, Q8H
     Route: 048
  5. ONDANSETRON [Concomitant]
     Active Substance: ONDANSETRON
     Indication: Vomiting
  6. LENVATINIB [Concomitant]
     Active Substance: LENVATINIB
     Indication: Product used for unknown indication
     Dosage: 10 MG, QD
     Route: 048
  7. POTASSIUM CHLORIDE [Concomitant]
     Active Substance: POTASSIUM CHLORIDE
     Indication: Product used for unknown indication
     Dosage: 15 ML, QD (STRENGTH: 20 MEQ/15 ML)
     Route: 048
  8. TRIAMCINOLONE [Concomitant]
     Active Substance: TRIAMCINOLONE
     Indication: Product used for unknown indication
     Dosage: 0.1 %, BID (APPLICATION TOPICALLY, APPLY TOPICALLY TO AFFECTED AREAS, ABDOMEN)
     Route: 061
  9. VITAMIN D [Concomitant]
     Active Substance: VITAMIN D NOS
     Indication: Product used for unknown indication
     Dosage: 50 MG, QD
     Route: 048
  10. CARAFATE [Concomitant]
     Active Substance: SUCRALFATE
     Indication: Proctitis
     Dosage: 1 G, TID PRN, (DISSOLVE IN WATER AND INSERT RECTALLY FOR PROCTITIS)
     Route: 048
  11. CHANTIX [Concomitant]
     Active Substance: VARENICLINE TARTRATE
     Indication: Product used for unknown indication
     Dosage: 1 DOSAGE FORM, QD (STRENGTH:  0.5 MG (11)- 1 MG (42), DOSE PACK)
     Route: 048
  12. PANTOPRAZOLE [Concomitant]
     Active Substance: PANTOPRAZOLE
     Indication: Product used for unknown indication
     Dosage: UNK, QD (DELAYED RELEASE (DR/EC))
     Route: 048
  13. PANTOPRAZOLE [Concomitant]
     Active Substance: PANTOPRAZOLE
     Dosage: 1 DOSAGE FORM, QD (DELAYED RELEASE (DR/EC))
     Route: 048
  14. PREDNISONE [Concomitant]
     Active Substance: PREDNISONE
     Indication: Abdominal discomfort
     Dosage: 3 DOSAGE FORM (EVERY EVENING, TAKE WITH FOOD TO PREVENT STOMACH UPSET)
     Route: 048
  15. LOSARTAN [Concomitant]
     Active Substance: LOSARTAN
     Indication: Product used for unknown indication
     Dosage: UNK MG, QD (50-125 MG)
     Route: 048
  16. NIFEDIPINE [Concomitant]
     Active Substance: NIFEDIPINE
     Indication: Product used for unknown indication
     Dosage: 1 DOSAGE FORM, QD (ER, EXTENDED RELEASE TABLET)
     Route: 048
  17. OFLOXACIN [Concomitant]
     Active Substance: OFLOXACIN
     Indication: Product used for unknown indication
     Dosage: 5 DRP, Q12H (INTO THE EAR(S))
     Route: 065
  18. HYDROCHLOROTHIAZIDE [Concomitant]
     Active Substance: HYDROCHLOROTHIAZIDE
     Indication: Product used for unknown indication
     Dosage: 1 DOSAGE FORM, QD
     Route: 048

REACTIONS (13)
  - Death [Fatal]
  - Clear cell renal cell carcinoma [Unknown]
  - Lung cancer metastatic [Unknown]
  - Pancytopenia [Unknown]
  - Hypokalaemia [Unknown]
  - Diarrhoea [Unknown]
  - Transaminases increased [Unknown]
  - Polycythaemia [Unknown]
  - Essential hypertension [Unknown]
  - Hyperlipidaemia [Unknown]
  - Renal mass [Unknown]
  - Pulmonary mass [Unknown]
  - Abdominal pain upper [Unknown]
